FAERS Safety Report 15496293 (Version 1)
Quarter: 2018Q4

REPORT INFORMATION
  Report Type: Spontaneous
  Country: US (occurrence: US)
  Receive Date: 20181012
  Receipt Date: 20181012
  Transmission Date: 20190205
  Serious: Yes (Other)
  Sender: FDA-Public Use
  Company Number: PHHY2018US123819

PATIENT
  Age: 62 Year
  Sex: Male

DRUGS (1)
  1. DOCETAXEL. [Suspect]
     Active Substance: DOCETAXEL
     Indication: PROSTATE CANCER METASTATIC
     Dosage: 50 MG/M2, Q2W (100 MG IN 250ML 0.9% NS OVER 60 MIN)
     Route: 042

REACTIONS (4)
  - Upper respiratory tract infection [Unknown]
  - Asthenia [Unknown]
  - Cardio-respiratory arrest [Recovered/Resolved]
  - Fatigue [Unknown]
